FAERS Safety Report 17992219 (Version 1)
Quarter: 2020Q3

REPORT INFORMATION
  Report Type: Other
  Country: FR (occurrence: FR)
  Receive Date: 20200708
  Receipt Date: 20200708
  Transmission Date: 20201105
  Serious: Yes (Death, Other)
  Sender: FDA-Public Use
  Company Number: FR-CELLTRION INC.-2020FR022725

PATIENT

DRUGS (3)
  1. RITUXIMAB (UNKNOWN) [Suspect]
     Active Substance: RITUXIMAB
     Indication: B-CELL LYMPHOMA RECURRENT
     Dosage: 375 MG/M2, 1 DAY, (ONGOING TREATMENT)
     Route: 042
     Dates: start: 20200511
  2. POLATUZUMAB VEDOTIN. [Suspect]
     Active Substance: POLATUZUMAB VEDOTIN
     Indication: B-CELL LYMPHOMA RECURRENT
     Dosage: 8 MG/KG, 1 DAY (ONGOING TREATMENT)
     Route: 042
     Dates: start: 20200511
  3. BENDAMUSTINE [Suspect]
     Active Substance: BENDAMUSTINE
     Indication: B-CELL LYMPHOMA RECURRENT
     Dosage: 90 MG/M2 (ONGOING TREATMENT)
     Route: 042
     Dates: start: 20200512

REACTIONS (2)
  - Thrombocytopenia [Not Recovered/Not Resolved]
  - Disease progression [Fatal]

NARRATIVE: CASE EVENT DATE: 20200522
